FAERS Safety Report 9067690 (Version 1)
Quarter: 2013Q1

REPORT INFORMATION
  Report Type: Spontaneous
  Country: FR (occurrence: FR)
  Receive Date: 20130128
  Receipt Date: 20130128
  Transmission Date: 20140127
  Serious: Yes (Other)
  Sender: FDA-Public Use
  Company Number: FR-BRISTOL-MYERS SQUIBB COMPANY-17308065

PATIENT
  Age: 60 Year
  Sex: Male

DRUGS (1)
  1. COUMADINE [Suspect]

REACTIONS (4)
  - Silent myocardial infarction [Unknown]
  - Calcinosis [Unknown]
  - Heart valve calcification [Unknown]
  - Arteriosclerosis coronary artery [Unknown]
